FAERS Safety Report 16724105 (Version 1)
Quarter: 2019Q3

REPORT INFORMATION
  Report Type: Spontaneous
  Country: NL (occurrence: NL)
  Receive Date: 20190821
  Receipt Date: 20190821
  Transmission Date: 20191005
  Serious: Yes (Hospitalization)
  Sender: FDA-Public Use
  Company Number: NL-AUROBINDO-AUR-APL-2019-055407

PATIENT

DRUGS (1)
  1. CLARITHROMYCIN 250 MG FILM-COATED TABLETS [Suspect]
     Active Substance: CLARITHROMYCIN
     Indication: PNEUMONIA
     Dosage: 1 DOSAGE FORM, TWO TIMES A DAY (2 X DAY)
     Route: 065
     Dates: start: 20190719, end: 20190726

REACTIONS (1)
  - Pharyngeal swelling [Recovering/Resolving]
